FAERS Safety Report 8789393 (Version 2)
Quarter: 2012Q4

REPORT INFORMATION
  Report Type: Spontaneous
  Country: US (occurrence: None)
  Receive Date: 20120904
  Receipt Date: 20120918
  Transmission Date: 20130627
  Serious: Yes (Hospitalization, Other)
  Sender: FDA-Public Use
  Company Number: ADR-2012-01603

PATIENT
  Sex: Male

DRUGS (3)
  1. BACLOFEN INTRATHECAL (BACLOFEN INJECTION) [Suspect]
     Indication: SPASTICITY
  2. BACLOFEN INTRATHECAL (BACLOFEN INJECTION) [Suspect]
     Indication: SPINAL CORD INJURY
  3. BACLOFEN INTRATHECAL (BACLOFEN INJECTION) [Suspect]
     Indication: SPINAL CORD DISORDER

REACTIONS (5)
  - Drug ineffective [None]
  - Muscle spasticity [None]
  - Drug withdrawal syndrome [None]
  - Device occlusion [None]
  - Arachnoiditis [None]
